FAERS Safety Report 19669794 (Version 2)
Quarter: 2021Q3

REPORT INFORMATION
  Report Type: Spontaneous
  Country: JP (occurrence: JP)
  Receive Date: 20210806
  Receipt Date: 20210812
  Transmission Date: 20211014
  Serious: Yes (Death, Hospitalization, Other)
  Sender: FDA-Public Use
  Company Number: JP-009507513-2108JPN000212J

PATIENT
  Age: 73 Year
  Sex: Male

DRUGS (2)
  1. KEYTRUDA [Suspect]
     Active Substance: PEMBROLIZUMAB
     Indication: RENAL CELL CARCINOMA STAGE IV
     Dosage: 200 MILLIGRAM, Q3W
     Route: 041
     Dates: start: 202103, end: 20210730
  2. AXITINIB [Suspect]
     Active Substance: AXITINIB
     Indication: RENAL CELL CARCINOMA STAGE IV
     Dosage: UNK
     Route: 048
     Dates: start: 202103, end: 20210801

REACTIONS (4)
  - Liver disorder [Fatal]
  - Acidosis [Unknown]
  - Cholecystitis [Fatal]
  - Gastrointestinal necrosis [Fatal]

NARRATIVE: CASE EVENT DATE: 202108
